FAERS Safety Report 23596402 (Version 2)
Quarter: 2024Q1

REPORT INFORMATION
  Report Type: Other
  Country: US (occurrence: None)
  Receive Date: 20240305
  Receipt Date: 20240319
  Transmission Date: 20240409
  Serious: Yes (Other)
  Sender: FDA-Public Use
  Company Number: US-ROCHE-3513779

PATIENT
  Age: 74 Year
  Sex: Male
  Weight: 102.15 kg

DRUGS (7)
  1. OCREVUS [Suspect]
     Active Substance: OCRELIZUMAB
     Indication: Progressive multiple sclerosis
     Dosage: LAST DATE OF TREATMENT: 25/JAN/2021, ANTICIPATED DATE OF TREATMENT: 26/JUL/82021, HIS LAST INFUSION:
     Route: 042
  2. OCREVUS [Suspect]
     Active Substance: OCRELIZUMAB
     Indication: Relapsing multiple sclerosis
  3. LOSARTAN [Concomitant]
     Active Substance: LOSARTAN
  4. TRIAMTERENE [Concomitant]
     Active Substance: TRIAMTERENE
  5. DULOXETINE [Concomitant]
     Active Substance: DULOXETINE
  6. GABAPENTIN [Concomitant]
     Active Substance: GABAPENTIN
  7. BENADRYL [Concomitant]
     Active Substance: DIPHENHYDRAMINE HYDROCHLORIDE

REACTIONS (8)
  - Bacterial infection [Not Recovered/Not Resolved]
  - Fall [Unknown]
  - Rash [Not Recovered/Not Resolved]
  - Pruritus [Not Recovered/Not Resolved]
  - Head injury [Recovered/Resolved]
  - Memory impairment [Not Recovered/Not Resolved]
  - Dysuria [Not Recovered/Not Resolved]
  - Urine abnormality [Not Recovered/Not Resolved]

NARRATIVE: CASE EVENT DATE: 20210101
